FAERS Safety Report 12481024 (Version 3)
Quarter: 2016Q3

REPORT INFORMATION
  Report Type: Spontaneous
  Country: US (occurrence: US)
  Receive Date: 20160620
  Receipt Date: 20160802
  Transmission Date: 20161109
  Serious: Yes (Other)
  Sender: FDA-Public Use
  Company Number: US-PFIZER INC-2016301348

PATIENT
  Age: 7 Year
  Sex: Male

DRUGS (5)
  1. GENOTROPIN [Suspect]
     Active Substance: SOMATROPIN
     Indication: PITUITARY TUMOUR
     Dosage: 0.8 MG, 1X/DAY, AT NIGHT
     Dates: start: 201603
  2. GENOTROPIN [Suspect]
     Active Substance: SOMATROPIN
     Dosage: 1 MG, 1X/DAY, AT NIGHT
  3. GENOTROPIN [Suspect]
     Active Substance: SOMATROPIN
     Dosage: UNK
  4. DDAVP [Concomitant]
     Active Substance: DESMOPRESSIN ACETATE
     Indication: HORMONE REPLACEMENT THERAPY
     Dosage: 0.2 MG, 2X/DAY
     Route: 048
  5. L-THYROXINE [Concomitant]
     Active Substance: LEVOTHYROXINE
     Indication: HORMONE REPLACEMENT THERAPY
     Dosage: 50 UG, 1X/DAY
     Route: 048

REACTIONS (1)
  - Pharyngitis streptococcal [Not Recovered/Not Resolved]

NARRATIVE: CASE EVENT DATE: 20160613
